FAERS Safety Report 13857767 (Version 1)
Quarter: 2017Q3

REPORT INFORMATION
  Report Type: Spontaneous
  Country: DE (occurrence: DE)
  Receive Date: 20170811
  Receipt Date: 20170811
  Transmission Date: 20171127
  Serious: Yes (Hospitalization)
  Sender: FDA-Public Use
  Company Number: DE-TEVA-793968GER

PATIENT
  Age: 64 Year
  Sex: Female
  Weight: 70 kg

DRUGS (8)
  1. AMISULPRID [Concomitant]
     Active Substance: AMISULPRIDE
     Dosage: 600 MILLIGRAM DAILY;
     Route: 048
     Dates: start: 20170703
  2. FOSFOMYCIN 8 G [Concomitant]
     Indication: URINARY TRACT INFECTION
     Dates: start: 20170705, end: 20170705
  3. CLOZAPIN-RATIOPHARM 50 MG TABLETTEN [Suspect]
     Active Substance: CLOZAPINE
     Indication: SCHIZOPHRENIA
     Route: 048
     Dates: start: 20170626, end: 20170703
  4. CLOZAPIN-RATIOPHARM 25 MG TABLETTEN [Suspect]
     Active Substance: CLOZAPINE
     Indication: SCHIZOPHRENIA
     Route: 048
     Dates: start: 20170626, end: 20170703
  5. AMISULPRID [Concomitant]
     Active Substance: AMISULPRIDE
     Indication: SCHIZOPHRENIA
     Dosage: 200 MILLIGRAM DAILY;
     Route: 048
     Dates: start: 20170629, end: 20170724
  6. OLANZAPIN [Suspect]
     Active Substance: OLANZAPINE
     Indication: SCHIZOPHRENIA
     Route: 048
     Dates: start: 20170710, end: 20170713
  7. LORAZEPAM. [Concomitant]
     Active Substance: LORAZEPAM
     Dosage: MAXIMUM 1.5 MG
     Dates: start: 20170704, end: 20170720
  8. GASTROZEPIN 75 MG [Concomitant]
     Dates: start: 20170629, end: 20170704

REACTIONS (3)
  - Troponin T increased [Recovering/Resolving]
  - Urinary tract infection [Recovering/Resolving]
  - Drug level increased [Recovering/Resolving]

NARRATIVE: CASE EVENT DATE: 20170626
